FAERS Safety Report 16898215 (Version 2)
Quarter: 2020Q4

REPORT INFORMATION
  Report Type: Spontaneous
  Country: FR (occurrence: FR)
  Receive Date: 20191009
  Receipt Date: 20201001
  Transmission Date: 20210113
  Serious: Yes (Death, Hospitalization, Other)
  Sender: FDA-Public Use
  Company Number: FR-SUN PHARMACEUTICAL INDUSTRIES LTD-2019R1-222955

PATIENT
  Age: 60 Year
  Sex: Female

DRUGS (2)
  1. CAPECITABINE. [Suspect]
     Active Substance: CAPECITABINE
     Indication: BREAST CANCER METASTATIC
     Dosage: 2250 MILLIGRAM, DAILY
     Route: 048
  2. VINORELBINE [Concomitant]
     Active Substance: VINORELBINE TARTRATE
     Indication: BREAST CANCER METASTATIC
     Dosage: 30 MILLIGRAM, QD
     Route: 048

REACTIONS (12)
  - Neutropenia [Unknown]
  - Vomiting [Unknown]
  - Erythema [Unknown]
  - Mental status changes [Unknown]
  - Abnormal clotting factor [Unknown]
  - Palmar-plantar erythrodysaesthesia syndrome [Unknown]
  - Mucosal inflammation [Unknown]
  - Dermatitis exfoliative generalised [Unknown]
  - Toxicity to various agents [Fatal]
  - Thrombocytopenia [Unknown]
  - Sepsis [Unknown]
  - Nausea [Unknown]
